FAERS Safety Report 15418037 (Version 2)
Quarter: 2018Q3

REPORT INFORMATION
  Report Type: Report from Study
  Country: CA (occurrence: CA)
  Receive Date: 20180924
  Receipt Date: 20180925
  Transmission Date: 20181010
  Serious: Yes (Other)
  Sender: FDA-Public Use
  Company Number: CA-GLAXOSMITHKLINE-CA2017GSK162221

PATIENT
  Age: 64 Year
  Sex: Male

DRUGS (16)
  1. METHOTREXATE. [Suspect]
     Active Substance: METHOTREXATE
     Indication: PRODUCT USED FOR UNKNOWN INDICATION
     Dosage: UNK
     Route: 065
  2. ASPIRIN. [Concomitant]
     Active Substance: ASPIRIN
  3. COSENTYX [Suspect]
     Active Substance: SECUKINUMAB
     Dosage: 300 MG, QW
     Route: 058
     Dates: start: 20180625
  4. CELEBREX [Concomitant]
     Active Substance: CELECOXIB
  5. DICLOFENAC [Suspect]
     Active Substance: DICLOFENAC
     Indication: PRODUCT USED FOR UNKNOWN INDICATION
     Dosage: UNK
  6. RAMIPRIL. [Suspect]
     Active Substance: RAMIPRIL
     Indication: PRODUCT USED FOR UNKNOWN INDICATION
     Dosage: 5 MG, QD
     Route: 065
  7. COSENTYX [Suspect]
     Active Substance: SECUKINUMAB
     Dosage: 300 MG, QMO
     Route: 058
     Dates: start: 20180910
  8. HUMIRA [Concomitant]
     Active Substance: ADALIMUMAB
  9. LIPITOR [Concomitant]
     Active Substance: ATORVASTATIN CALCIUM
  10. COSENTYX [Suspect]
     Active Substance: SECUKINUMAB
     Indication: PRODUCT USED FOR UNKNOWN INDICATION
     Dosage: 300 MG, QW (SENSOREADY PEN)
     Route: 058
     Dates: start: 20180611
  11. FOLIC ACID. [Suspect]
     Active Substance: FOLIC ACID
     Indication: PRODUCT USED FOR UNKNOWN INDICATION
     Dosage: UNK
     Route: 065
  12. METOPROLOL. [Suspect]
     Active Substance: METOPROLOL
     Indication: CARDIAC DISORDER
     Dosage: 1 DF, BID
     Route: 048
  13. COSENTYX [Suspect]
     Active Substance: SECUKINUMAB
     Dosage: UNK
     Route: 065
     Dates: start: 20180703
  14. COSENTYX [Suspect]
     Active Substance: SECUKINUMAB
     Dosage: 300 MG, QMO
     Route: 058
     Dates: start: 201808
  15. SULFASALAZINE. [Concomitant]
     Active Substance: SULFASALAZINE
  16. COSENTYX [Suspect]
     Active Substance: SECUKINUMAB
     Dosage: 300 MG, QW
     Route: 058
     Dates: start: 20180618

REACTIONS (15)
  - Arthralgia [Not Recovered/Not Resolved]
  - Arthralgia [Unknown]
  - Rash [Unknown]
  - Psoriasis [Unknown]
  - Pain [Unknown]
  - Injection site bruising [Unknown]
  - Pruritus [Unknown]
  - Polyarthritis [Unknown]
  - Injection site haemorrhage [Unknown]
  - Limb discomfort [Unknown]
  - Injection site discolouration [Unknown]
  - Arthritis [Unknown]
  - Joint swelling [Unknown]
  - Hypersensitivity [Unknown]
  - Injection site pain [Unknown]

NARRATIVE: CASE EVENT DATE: 20171012
